FAERS Safety Report 7558196-9 (Version None)
Quarter: 2011Q2

REPORT INFORMATION
  Report Type: 
  Country: None (occurrence: None)
  Receive Date: 20110620
  Receipt Date: 20110609
  Transmission Date: 20111010
  Serious: Yes (Hospitalization, Other)
  Sender: FDA-Public Use
  Company Number: JP-PFIZER INC-2011125180

PATIENT
  Age: 74 Year
  Sex: Female
  Weight: 42.3 kg

DRUGS (9)
  1. LIPITOR [Suspect]
     Indication: HYPERCHOLESTEROLAEMIA
     Dosage: 10 MG, 1X/DAY
     Route: 048
     Dates: start: 20100201, end: 20100525
  2. ZOLOFT [Suspect]
     Indication: DEPRESSION
     Dosage: 25 MG, 3X/DAY
     Route: 048
     Dates: start: 20100630, end: 20100804
  3. CILNIDIPINE [Concomitant]
     Indication: HYPERTENSION
     Dosage: UNK
     Dates: start: 20100201
  4. PAXIL [Suspect]
     Indication: DEPRESSION
     Dosage: 10 MG, 2X/DAY
     Route: 048
     Dates: start: 20060215, end: 20100525
  5. MIRTAZAPINE [Suspect]
     Indication: DEPRESSION
     Dosage: 15 MG, UID/QD
     Route: 048
     Dates: start: 20100623, end: 20100803
  6. LOSARTAN POTASSIUM [Concomitant]
     Indication: HYPERTENSION
     Dosage: UNK
     Dates: start: 20091228, end: 20100525
  7. CRESTOR [Suspect]
     Indication: HYPERCHOLESTEROLAEMIA
     Dosage: 2.5 MG, UID/QD
     Route: 048
     Dates: start: 20100723, end: 20100806
  8. FEXOFENADINE HYDROCHLORIDE [Concomitant]
     Indication: RHINITIS
     Dosage: UNK
     Dates: start: 20100227, end: 20100525
  9. REBAMIPIDE [Concomitant]
     Indication: GASTRITIS
     Dosage: UNK
     Dates: start: 20100227

REACTIONS (8)
  - HAEMATEMESIS [None]
  - REFLUX OESOPHAGITIS [None]
  - ASPARTATE AMINOTRANSFERASE INCREASED [None]
  - BLOOD CREATINE PHOSPHOKINASE INCREASED [None]
  - LOW DENSITY LIPOPROTEIN INCREASED [None]
  - INAPPROPRIATE ANTIDIURETIC HORMONE SECRETION [None]
  - GASTRITIS [None]
  - ALANINE AMINOTRANSFERASE INCREASED [None]
